FAERS Safety Report 6992247-5 (Version None)
Quarter: 2010Q3

REPORT INFORMATION
  Report Type: 
  Country: None (occurrence: None)
  Receive Date: 20100917
  Receipt Date: 20100915
  Transmission Date: 20110219
  Serious: Yes (Hospitalization)
  Sender: FDA-Public Use
  Company Number: FR-BRISTOL-MYERS SQUIBB COMPANY-15156045

PATIENT
  Age: 55 Year
  Sex: Female

DRUGS (3)
  1. ABILIFY [Suspect]
     Indication: MANIA
     Dosage: REDUCED TO 5MG;START:7 TO 8MONTHS AGO
     Route: 048
     Dates: start: 20090917, end: 20100708
  2. STILNOX [Concomitant]
     Dosage: 1 DF=1 TAB
     Route: 048
  3. SERESTA [Concomitant]
     Route: 048

REACTIONS (2)
  - INTESTINAL OBSTRUCTION [None]
  - PULMONARY EMBOLISM [None]
